FAERS Safety Report 8462218-0 (Version None)
Quarter: 2012Q2

REPORT INFORMATION
  Report Type: 
  Country: None (occurrence: None)
  Receive Date: 20120625
  Receipt Date: 20120620
  Transmission Date: 20120825
  Serious: Yes (Hospitalization)
  Sender: FDA-Public Use
  Company Number: PHHY2012IE049871

PATIENT
  Sex: Female

DRUGS (1)
  1. GILENYA [Suspect]
     Indication: RELAPSING-REMITTING MULTIPLE SCLEROSIS
     Dosage: 0.5 MG, DAILY
     Route: 048
     Dates: start: 20120608

REACTIONS (7)
  - URINARY TRACT INFECTION [None]
  - PHOTOPHOBIA [None]
  - EYE SWELLING [None]
  - HEADACHE [None]
  - URINE COLOUR ABNORMAL [None]
  - FATIGUE [None]
  - APPENDICITIS [None]
